FAERS Safety Report 19591286 (Version 4)
Quarter: 2025Q1

REPORT INFORMATION
  Report Type: Spontaneous
  Country: US (occurrence: US)
  Receive Date: 20210721
  Receipt Date: 20250226
  Transmission Date: 20250409
  Serious: No
  Sender: PFIZER
  Company Number: US-PFIZER INC-2021862388

PATIENT
  Age: 80 Year
  Sex: Female

DRUGS (5)
  1. IBRANCE [Suspect]
     Active Substance: PALBOCICLIB
  2. CITALOPRAM [Concomitant]
     Active Substance: CITALOPRAM
     Dosage: 10 MG, 1X/DAY
  3. ESCITALOPRAM [Concomitant]
     Active Substance: ESCITALOPRAM OXALATE
  4. ESCITALOPRAM [Concomitant]
     Active Substance: ESCITALOPRAM OXALATE
  5. LEXAPRO [Concomitant]
     Active Substance: ESCITALOPRAM OXALATE
     Dosage: UNK, 1X/DAY (AT NIGHT TO GO TO SLEEP)

REACTIONS (12)
  - Neoplasm progression [Unknown]
  - Palpitations [Unknown]
  - Dyspnoea [Unknown]
  - Depression [Unknown]
  - Hypobarism [Unknown]
  - Eye disorder [Unknown]
  - Candida infection [Unknown]
  - Malaise [Unknown]
  - Road traffic accident [Unknown]
  - Pruritus [Unknown]
  - Enamel anomaly [Unknown]
  - Oral disorder [Unknown]
